FAERS Safety Report 14182746 (Version 5)
Quarter: 2018Q1

REPORT INFORMATION
  Report Type: Report from Study
  Country: DE (occurrence: DE)
  Receive Date: 20171113
  Receipt Date: 20180227
  Transmission Date: 20180508
  Serious: Yes (Hospitalization)
  Sender: FDA-Public Use
  Company Number: PHHO2017DE015340

PATIENT
  Age: 74 Year
  Sex: Female
  Weight: 64.2 kg

DRUGS (8)
  1. ASPIRIN. [Concomitant]
     Active Substance: ASPIRIN
     Indication: TRANSIENT ISCHAEMIC ATTACK
     Dosage: 100 MG, UNK
     Route: 065
     Dates: start: 2010
  2. SORMODREN [Concomitant]
     Active Substance: BORNAPRINE HYDROCHLORIDE
     Indication: HOT FLUSH
     Dosage: 4 MG, UNK
     Route: 065
     Dates: start: 2009
  3. LEE011 [Suspect]
     Active Substance: RIBOCICLIB
     Dosage: UNK
     Route: 048
     Dates: start: 20171020
  4. FENTANYL. [Concomitant]
     Active Substance: FENTANYL
     Indication: PAIN
     Dosage: 75 MG, UNK
     Route: 065
     Dates: start: 2002
  5. LYRICA [Concomitant]
     Active Substance: PREGABALIN
     Indication: PAIN
     Dosage: 150 MG, UNK
     Route: 065
     Dates: start: 2002
  6. LEE011 [Suspect]
     Active Substance: RIBOCICLIB
     Indication: BREAST CANCER
     Dosage: 600 MG, QD
     Route: 048
     Dates: start: 20170524, end: 20170905
  7. CGS 20267 [Suspect]
     Active Substance: LETROZOLE
     Indication: BREAST CANCER
     Dosage: UNK
     Route: 048
     Dates: start: 20170525
  8. MORPHIN [Concomitant]
     Active Substance: MORPHINE
     Indication: PAIN
     Dosage: 15 DRP, UNK
     Route: 065

REACTIONS (3)
  - Pneumonia [Recovered/Resolved]
  - Bronchitis [Recovering/Resolving]
  - Urosepsis [Recovered/Resolved]

NARRATIVE: CASE EVENT DATE: 20170905
